FAERS Safety Report 5904454-0 (Version None)
Quarter: 2008Q3

REPORT INFORMATION
  Report Type: 
  Country: None (occurrence: None)
  Receive Date: 20080930
  Receipt Date: 20080930
  Transmission Date: 20090109
  Serious: Yes (Hospitalization)
  Sender: FDA-Public Use
  Company Number: None

PATIENT
  Age: 58 Year
  Sex: Male

DRUGS (2)
  1. WARFARIN SODIUM [Suspect]
     Dosage: MG EVERYDAY PO
     Route: 048
     Dates: start: 20070912, end: 20080828
  2. ASPIRIN [Suspect]
     Dosage: 81 MG EVERYDAY PO
     Route: 048
     Dates: start: 20080221, end: 20080828

REACTIONS (3)
  - ABDOMINAL WALL HAEMATOMA [None]
  - PAIN [None]
  - RIB FRACTURE [None]
